FAERS Safety Report 6397611-3 (Version None)
Quarter: 2009Q4

REPORT INFORMATION
  Report Type: 
  Country: None (occurrence: None)
  Receive Date: 20091012
  Receipt Date: 20090928
  Transmission Date: 20100525
  Serious: Yes (Hospitalization)
  Sender: FDA-Public Use
  Company Number: ES-MYLANLABS-2009S1016921

PATIENT
  Age: 66 Year
  Sex: Female

DRUGS (2)
  1. RASAGILINE [Interacting]
     Indication: PARKINSON'S DISEASE
     Dosage: 1 MG/DAY
  2. ESCITALOPRAM [Suspect]
     Indication: DEPRESSION
     Dosage: 10 MG/DAY

REACTIONS (3)
  - CONFUSIONAL STATE [None]
  - DRUG INTERACTION [None]
  - HALLUCINATION, VISUAL [None]
